FAERS Safety Report 10637912 (Version 7)
Quarter: 2015Q2

REPORT INFORMATION
  Report Type: Spontaneous
  Country: US (occurrence: US)
  Receive Date: 20141208
  Receipt Date: 20150625
  Transmission Date: 20150821
  Serious: Yes (Hospitalization, Other)
  Sender: FDA-Public Use
  Company Number: US-GLAXOSMITHKLINE-US2014GSK032247

PATIENT
  Age: 81 Year
  Sex: Female

DRUGS (8)
  1. TYKERB [Suspect]
     Active Substance: LAPATINIB DITOSYLATE
     Indication: BREAST CANCER STAGE IV
     Dosage: 5 DF, QD
     Route: 048
     Dates: start: 2012
  2. AROMASIN [Suspect]
     Active Substance: EXEMESTANE
     Indication: BREAST CANCER STAGE IV
     Dosage: 25 MG, QD
     Dates: start: 201209
  3. TYKERB [Suspect]
     Active Substance: LAPATINIB DITOSYLATE
     Dosage: UNK
  4. TYKERB [Suspect]
     Active Substance: LAPATINIB DITOSYLATE
     Dosage: UNK
  5. TYKERB [Suspect]
     Active Substance: LAPATINIB DITOSYLATE
     Dosage: UNK
  6. TYKERB [Suspect]
     Active Substance: LAPATINIB DITOSYLATE
     Dosage: UNK
  7. AROMASIN [Suspect]
     Active Substance: EXEMESTANE
     Indication: INVASIVE BREAST CARCINOMA
  8. TYKERB [Suspect]
     Active Substance: LAPATINIB DITOSYLATE
     Indication: INVASIVE BREAST CARCINOMA
     Dosage: 1250 MG, QD
     Route: 065
     Dates: start: 20120919

REACTIONS (6)
  - Toe amputation [Not Recovered/Not Resolved]
  - Ostectomy [Unknown]
  - Rehabilitation therapy [Unknown]
  - Osteomyelitis [Unknown]
  - Toe operation [Unknown]
  - Diabetic foot infection [Unknown]

NARRATIVE: CASE EVENT DATE: 20130108
